FAERS Safety Report 9447779 (Version 1)
Quarter: 2013Q3

REPORT INFORMATION
  Report Type: Spontaneous
  Country: US (occurrence: None)
  Receive Date: 20130807
  Receipt Date: 20130807
  Transmission Date: 20140515
  Serious: Yes (Hospitalization)
  Sender: FDA-Public Use
  Company Number: None

PATIENT
  Age: 74 Year
  Sex: Male
  Weight: 64.86 kg

DRUGS (3)
  1. GEMCITABINE [Suspect]
     Indication: BLADDER CANCER
     Route: 042
     Dates: start: 20130715
  2. NEULASTA [Suspect]
     Indication: NEOPLASM MALIGNANT
     Dosage: DAY 2 EVERY 2 WEEKS
     Dates: start: 20130716
  3. CISPLATIN [Suspect]

REACTIONS (5)
  - Injection site pain [None]
  - Injection site erythema [None]
  - Pain in extremity [None]
  - Oedema peripheral [None]
  - Cellulitis [None]
